FAERS Safety Report 6684425-X (Version None)
Quarter: 2010Q2

REPORT INFORMATION
  Report Type: 
  Country: None (occurrence: None)
  Receive Date: 20100416
  Receipt Date: 20100412
  Transmission Date: 20101027
  Serious: Yes (Life-Threatening, Hospitalization)
  Sender: FDA-Public Use
  Company Number: US-NOVOPROD-306993

PATIENT
  Sex: Male
  Weight: 86.168 kg

DRUGS (2)
  1. NOVOLOG [Suspect]
     Indication: TYPE 1 DIABETES MELLITUS
     Dosage: SLIDING SCALE
     Route: 058
  2. LANTUS [Suspect]
     Indication: TYPE 1 DIABETES MELLITUS
     Dosage: 35 IU, QD
     Route: 058

REACTIONS (4)
  - BLOOD GLUCOSE DECREASED [None]
  - CARDIAC ARREST [None]
  - DIABETIC KETOACIDOSIS [None]
  - HYPOTHERMIA [None]
